FAERS Safety Report 8270937-4 (Version None)
Quarter: 2012Q2

REPORT INFORMATION
  Report Type: 
  Country: None (occurrence: None)
  Receive Date: 20120410
  Receipt Date: 20120405
  Transmission Date: 20120825
  Serious: No
  Sender: FDA-Public Use
  Company Number: US-PFIZER INC-2012048814

PATIENT
  Sex: Female

DRUGS (4)
  1. PREMARIN [Suspect]
     Indication: HORMONE REPLACEMENT THERAPY
     Dosage: 0.625 MG, 1X/DAY
     Route: 048
     Dates: start: 19940101
  2. PROGESTERONE [Concomitant]
     Dosage: UNK
  3. LAMICTAL [Concomitant]
     Dosage: UNK
  4. LITHIUM [Concomitant]
     Dosage: UNK

REACTIONS (4)
  - POOR QUALITY DRUG ADMINISTERED [None]
  - NAUSEA [None]
  - DISCOMFORT [None]
  - ABDOMINAL DISCOMFORT [None]
